FAERS Safety Report 9251881 (Version 1)
Quarter: 2013Q1

REPORT INFORMATION
  Report Type: Spontaneous
  Country: US (occurrence: None)
  Receive Date: 20130305
  Receipt Date: 20130305
  Transmission Date: 20140127
  Serious: Yes (Other)
  Sender: FDA-Public Use
  Company Number: 163-21880-12081974 (0)

PATIENT
  Age: 67 Year
  Sex: Male
  Weight: 72.58 kg

DRUGS (16)
  1. REVLIMID [Suspect]
     Indication: PLASMA CELL MYELOMA
     Dosage: 14 IN 21 D
     Route: 048
     Dates: start: 20120727
  2. ALPRAZOLAM (ALPRAZOLAM) [Concomitant]
  3. ASPIRIN (ACETYLSALICYLIC ACID) [Concomitant]
  4. DECADRON (DEXAMETHASONE) [Concomitant]
  5. DOCUSATE SODIUM (DOCUSATE SODIUM) [Concomitant]
  6. DURAGESIC (FENTANYL) [Concomitant]
  7. ENALAPRIL [Concomitant]
  8. GLYBURIDE (GLIBENCLAMIDE) [Concomitant]
  9. HYDROMORPHONE (HYDROMORPHONE) [Concomitant]
  10. JANUVIA (SITAGLIPTIN PHOSPHATE) [Concomitant]
  11. METFORMIN (METFORMIN) [Concomitant]
  12. NEXIUM [Concomitant]
  13. PROCHLORPERAZINE (PROCHLORPERAZINE) [Concomitant]
  14. TAMSULOSIN (TAMSULOSIN) [Concomitant]
  15. VALACYCLOVIR (VALACICLOVIR HYDROCHLORIDE) [Concomitant]
  16. VELCADE (BORTEZOMIB) [Concomitant]

REACTIONS (1)
  - Constipation [None]
